FAERS Safety Report 17664596 (Version 1)
Quarter: 2020Q2

REPORT INFORMATION
  Report Type: Spontaneous
  Country: US (occurrence: US)
  Receive Date: 20200414
  Receipt Date: 20200414
  Transmission Date: 20200713
  Serious: Yes (Other)
  Sender: FDA-Public Use
  Company Number: US-CELLTRION-2020-US-006644

PATIENT
  Age: 81 Year
  Sex: Male

DRUGS (11)
  1. DOXAZOSIN [Concomitant]
     Active Substance: DOXAZOSIN MESYLATE
  2. OMEPRAZOLE. [Concomitant]
     Active Substance: OMEPRAZOLE
  3. ALLOPURINOL. [Concomitant]
     Active Substance: ALLOPURINOL
  4. DOCUSATE SODIUM. [Concomitant]
     Active Substance: DOCUSATE SODIUM
  5. RIFAMPICIN [Concomitant]
     Active Substance: RIFAMPIN
  6. FENOFIBRATE. [Concomitant]
     Active Substance: FENOFIBRATE
  7. ASPIRIN. [Concomitant]
     Active Substance: ASPIRIN
  8. METFORMIN [Concomitant]
     Active Substance: METFORMIN HYDROCHLORIDE
  9. LINEZOLID TABLETS (NON-SPECIFIC) [Suspect]
     Active Substance: LINEZOLID
     Indication: ANTIBIOTIC THERAPY
     Dosage: 800 MG TWICE DAILY
     Route: 065
  10. ROSUVASTATIN. [Concomitant]
     Active Substance: ROSUVASTATIN
  11. CLOPIDOGREL [Concomitant]
     Active Substance: CLOPIDOGREL BISULFATE

REACTIONS (2)
  - Retinal disorder [Unknown]
  - Optic neuropathy [Unknown]
